FAERS Safety Report 13877662 (Version 1)
Quarter: 2017Q3

REPORT INFORMATION
  Report Type: Spontaneous
  Country: CN (occurrence: CN)
  Receive Date: 20170817
  Receipt Date: 20170817
  Transmission Date: 20171127
  Serious: Yes (Hospitalization, Other)
  Sender: FDA-Public Use
  Company Number: CN-SUPERNUS PHARMACEUTICALS, INC.-2017SUP00205

PATIENT
  Age: 1 Day
  Sex: Male
  Weight: 3.32 kg

DRUGS (2)
  1. OXCARBAZEPINE. [Suspect]
     Active Substance: OXCARBAZEPINE
     Route: 064
  2. OXCARBAZEPINE. [Suspect]
     Active Substance: OXCARBAZEPINE
     Dosage: UNK
     Route: 063

REACTIONS (1)
  - Drug withdrawal syndrome neonatal [Recovered/Resolved]
